FAERS Safety Report 17084701 (Version 4)
Quarter: 2020Q2

REPORT INFORMATION
  Report Type: Report from Study
  Country: US (occurrence: US)
  Receive Date: 20191127
  Receipt Date: 20200427
  Transmission Date: 20200713
  Serious: Yes (Death, Hospitalization)
  Sender: FDA-Public Use
  Company Number: US-ACTELION-A-NJ2019-190548

PATIENT
  Age: 68 Year
  Sex: Male
  Weight: 108.84 kg

DRUGS (4)
  1. COUMADIN [Concomitant]
     Active Substance: WARFARIN SODIUM
  2. UPTRAVI [Suspect]
     Active Substance: SELEXIPAG
     Indication: PULMONARY ARTERIAL HYPERTENSION
     Dosage: 1600 MCG, BID
     Route: 048
  3. UPTRAVI [Suspect]
     Active Substance: SELEXIPAG
     Dosage: UNK
     Route: 048
     Dates: start: 20180827
  4. ADEMPAS [Concomitant]
     Active Substance: RIOCIGUAT

REACTIONS (11)
  - Pneumothorax [Unknown]
  - Anaemia [Unknown]
  - Pain in jaw [Unknown]
  - Hospitalisation [Unknown]
  - Nasopharyngitis [Unknown]
  - Tooth fracture [Unknown]
  - Headache [Unknown]
  - Death [Fatal]
  - Toothache [Unknown]
  - Tooth extraction [Unknown]
  - Pleural effusion [Unknown]

NARRATIVE: CASE EVENT DATE: 20200407
